FAERS Safety Report 6340652-2 (Version None)
Quarter: 2009Q3

REPORT INFORMATION
  Report Type: 
  Country: None (occurrence: None)
  Receive Date: 20090904
  Receipt Date: 20090821
  Transmission Date: 20100115
  Serious: Yes (Hospitalization, Other)
  Sender: FDA-Public Use
  Company Number: US-BAYER-200922217NA

PATIENT
  Age: 47 Year
  Sex: Female

DRUGS (3)
  1. BETASERON [Suspect]
     Indication: MULTIPLE SCLEROSIS
     Dosage: TOTAL DAILY DOSE: 8 MIU
     Route: 058
     Dates: start: 20070404, end: 20090109
  2. COUMADIN [Concomitant]
  3. COPAXONE [Concomitant]
     Dates: start: 20090201

REACTIONS (4)
  - INFLAMMATION [None]
  - MOBILITY DECREASED [None]
  - OEDEMA PERIPHERAL [None]
  - THROMBOSIS [None]
